FAERS Safety Report 11145951 (Version 2)
Quarter: 2015Q3

REPORT INFORMATION
  Report Type: Spontaneous
  Country: US (occurrence: US)
  Receive Date: 20150528
  Receipt Date: 20150806
  Transmission Date: 20151125
  Serious: Yes (Other)
  Sender: FDA-Public Use
  Company Number: US-GLAXOSMITHKLINE INC.-US2015GSK072624

PATIENT
  Age: 56 Year
  Sex: Male

DRUGS (4)
  1. RILUZOLE. [Suspect]
     Active Substance: RILUZOLE
  2. MEKINIST [Suspect]
     Active Substance: TRAMETINIB DIMETHYL SULFOXIDE
     Indication: PRODUCT USED FOR UNKNOWN INDICATION
     Dosage: UNK UNK, U
     Route: 065
  3. IBRANCE [Suspect]
     Active Substance: PALBOCICLIB
     Indication: METASTASES TO LIVER
  4. IBRANCE [Suspect]
     Active Substance: PALBOCICLIB
     Indication: MALIGNANT MELANOMA
     Dosage: 125 MG, DAY 1 THROUGH DAY 21 EVERY 28 DAYS
     Route: 048
     Dates: start: 20150318, end: 20150727

REACTIONS (4)
  - Staphylococcal infection [Unknown]
  - Candida infection [Unknown]
  - Infection [Unknown]
  - Rash [Unknown]

NARRATIVE: CASE EVENT DATE: 2015
